FAERS Safety Report 7971776-1 (Version None)
Quarter: 2011Q4

REPORT INFORMATION
  Report Type: 
  Country: None (occurrence: None)
  Receive Date: 20111212
  Receipt Date: 20111202
  Transmission Date: 20120403
  Serious: Yes (Other)
  Sender: FDA-Public Use
  Company Number: US-BAYER-2011-116358

PATIENT
  Sex: Female

DRUGS (1)
  1. MIRENA [Suspect]
     Indication: CONTRACEPTION
     Dosage: 20 MCG/24HR, CONT
     Route: 015
     Dates: start: 20090201

REACTIONS (10)
  - SOMNOLENCE [None]
  - GENITAL HAEMORRHAGE [None]
  - BACK PAIN [None]
  - ABDOMINAL PAIN [None]
  - DEVICE EXPULSION [None]
  - PARALYSIS [None]
  - PREGNANCY WITH CONTRACEPTIVE DEVICE [None]
  - MULTIPLE SCLEROSIS [None]
  - NAUSEA [None]
  - DEVICE DISLOCATION [None]
